FAERS Safety Report 9257187 (Version 2)
Quarter: 2013Q2

REPORT INFORMATION
  Report Type: Spontaneous
  Country: US (occurrence: None)
  Receive Date: 20130423
  Receipt Date: 20130501
  Transmission Date: 20140414
  Serious: Yes (Hospitalization, Other)
  Sender: FDA-Public Use
  Company Number: USA/USA/13/0029166

PATIENT
  Age: 15 Year
  Sex: Female

DRUGS (2)
  1. QUETIAPINE FUMURATE [Suspect]
     Indication: MAJOR DEPRESSION
     Route: 048
     Dates: start: 20120827
  2. METFORMIN (METFORMIN) [Suspect]
     Indication: PRODUCT USED FOR UNKNOWN INDICATION
     Route: 048
     Dates: start: 20120827

REACTIONS (11)
  - Vomiting [None]
  - Somnolence [None]
  - Nausea [None]
  - Hypoglycaemia [None]
  - Hypotension [None]
  - Lactic acidosis [None]
  - Intentional overdose [None]
  - Blood glucose increased [None]
  - Haemodialysis [None]
  - Self-medication [None]
  - Electrocardiogram QT prolonged [None]
